FAERS Safety Report 22006510 (Version 2)
Quarter: 2023Q1

REPORT INFORMATION
  Report Type: Other
  Country: None (occurrence: US)
  Receive Date: 20230217
  Receipt Date: 20230217
  Transmission Date: 20230418
  Serious: Yes (Hospitalization)
  Sender: FDA-Public Use
  Company Number: US-B.Braun Medical Inc.-2138033

PATIENT
  Age: 69 Year
  Sex: Female

DRUGS (2)
  1. CEFTRIAXONE SODIUM [Suspect]
     Active Substance: CEFTRIAXONE SODIUM
     Indication: Hyperhidrosis
  2. AMPICILLIN [Suspect]
     Active Substance: AMPICILLIN

REACTIONS (2)
  - Drug ineffective [Not Recovered/Not Resolved]
  - Acute kidney injury [Not Recovered/Not Resolved]
